FAERS Safety Report 9208742 (Version 1)
Quarter: 2013Q2

REPORT INFORMATION
  Report Type: Spontaneous
  Country: US (occurrence: US)
  Receive Date: 20130404
  Receipt Date: 20130404
  Transmission Date: 20140414
  Serious: No
  Sender: FDA-Public Use
  Company Number: US-PFIZER INC-2013104222

PATIENT
  Age: 41 Year
  Sex: Male

DRUGS (2)
  1. XALKORI [Suspect]
     Dosage: 250 MG, 2X/DAY
     Route: 048
     Dates: start: 20130305
  2. STA9090 [Concomitant]
     Dosage: 2 WEEKS ON THEN 1 WEEK OFF
     Route: 042

REACTIONS (4)
  - Nausea [Unknown]
  - Constipation [Unknown]
  - Diarrhoea [Unknown]
  - Vision blurred [Unknown]
